FAERS Safety Report 8170735-6 (Version None)
Quarter: 2012Q1

REPORT INFORMATION
  Report Type: 
  Country: None (occurrence: None)
  Receive Date: 20120228
  Receipt Date: 20120203
  Transmission Date: 20120608
  Serious: Yes (Other)
  Sender: FDA-Public Use
  Company Number: US-ROCHE-1039073

PATIENT
  Sex: Male

DRUGS (6)
  1. PENTOSTATIN [Suspect]
     Indication: HAIRY CELL LEUKAEMIA
  2. INTRON [Suspect]
     Indication: HAIRY CELL LEUKAEMIA
  3. PEGINTERFERON ALFA-2B [Suspect]
     Indication: HAIRY CELL LEUKAEMIA
  4. RITUXAN [Suspect]
     Indication: HAIRY CELL LEUKAEMIA
  5. FLUDARABINE PHOSPHATE [Suspect]
     Indication: HAIRY CELL LEUKAEMIA
  6. FENRETINIDE [Suspect]
     Indication: HAIRY CELL LEUKAEMIA

REACTIONS (4)
  - HAIRY CELL LEUKAEMIA [None]
  - HEARING IMPAIRED [None]
  - TUBERCULOSIS [None]
  - HYPERTRIGLYCERIDAEMIA [None]
